FAERS Safety Report 19387521 (Version 1)
Quarter: 2021Q2

REPORT INFORMATION
  Report Type: Spontaneous
  Country: US (occurrence: US)
  Receive Date: 20210605
  Receipt Date: 20210605
  Transmission Date: 20210717
  Serious: Yes (Hospitalization)
  Sender: FDA-Public Use
  Company Number: None

PATIENT
  Age: 75 Year
  Sex: Male
  Weight: 50.8 kg

DRUGS (1)
  1. ERBITUX [Suspect]
     Active Substance: CETUXIMAB
     Dates: end: 20210429

REACTIONS (14)
  - Skin warm [None]
  - Dermatitis infected [None]
  - Hypotension [None]
  - Dry skin [None]
  - Tachycardia [None]
  - Erythema [None]
  - Pyrexia [None]
  - Neck pain [None]
  - Skin exfoliation [None]
  - Localised infection [None]
  - Cellulitis [None]
  - Staphylococcal bacteraemia [None]
  - Sepsis [None]
  - Pain of skin [None]

NARRATIVE: CASE EVENT DATE: 20210524
